FAERS Safety Report 4592075-4 (Version None)
Quarter: 2005Q1

REPORT INFORMATION
  Report Type: 
  Country: None (occurrence: None)
  Receive Date: 20050125
  Receipt Date: 20041027
  Transmission Date: 20050727
  Serious: No
  Sender: FDA-Public Use
  Company Number: USA040876575

PATIENT
  Age: 79 Year
  Sex: Female
  Weight: 73 kg

DRUGS (7)
  1. FORTEO [Suspect]
     Indication: OSTEOPOROSIS
     Dosage: 20 UG/1 DAY
     Dates: start: 20040709
  2. BEXTRA [Concomitant]
  3. COZAAR [Concomitant]
  4. QUININE SULFATE [Concomitant]
  5. NITRODUR II (GLYCERYL TRINITRATE) [Concomitant]
  6. CALCIUM GLUCONATE [Concomitant]
  7. ACIPHEX [Concomitant]

REACTIONS (5)
  - APATHY [None]
  - ASTHENIA [None]
  - CRYING [None]
  - DEPRESSION [None]
  - URTICARIA [None]
